FAERS Safety Report 5742450-7 (Version None)
Quarter: 2008Q2

REPORT INFORMATION
  Report Type: 
  Country: None (occurrence: None)
  Receive Date: 20080514
  Receipt Date: 20080514
  Transmission Date: 20081010
  Serious: Yes (Hospitalization)
  Sender: FDA-Public Use
  Company Number: None

PATIENT
  Age: 57 Year
  Sex: Male

DRUGS (1)
  1. ETODOLAC [Suspect]
     Indication: SPINAL COLUMN STENOSIS
     Dosage: 300 MG TID PO
     Route: 048
     Dates: start: 20070815, end: 20080206

REACTIONS (2)
  - DIARRHOEA [None]
  - DUODENAL ULCER PERFORATION [None]
